FAERS Safety Report 21194884 (Version 1)
Quarter: 2022Q3

REPORT INFORMATION
  Report Type: Spontaneous
  Country: US (occurrence: None)
  Receive Date: 20220809
  Receipt Date: 20220809
  Transmission Date: 20221026
  Serious: No
  Sender: FDA-Public Use
  Company Number: None

PATIENT
  Age: 66 Year
  Sex: Male
  Weight: 76.66 kg

DRUGS (32)
  1. XGEVA [Suspect]
     Active Substance: DENOSUMAB
     Indication: Plasma cell myeloma
     Dosage: FREQUENCY : WEEKLY;?
     Route: 048
  2. ACETAMINOPHEN [Concomitant]
  3. ACYCLOVIR [Concomitant]
  4. ADULT ASPIRIN [Concomitant]
  5. CENTRUM [Concomitant]
  6. CETIRIZINE [Concomitant]
  7. CHOLECALCIFEROL [Concomitant]
  8. DAKINS DARZALEX [Concomitant]
  9. FASPRO [Concomitant]
  10. DEXAMETHASONE [Concomitant]
  11. DIPHENHYDRAMINE [Concomitant]
  12. DOCUSATE SODIUM [Concomitant]
  13. DOXYCYCLINE [Concomitant]
  14. MONOHYDRATE [Concomitant]
  15. FAMOTIDINE [Concomitant]
  16. GAMMAGARD INJECTION [Concomitant]
  17. KLOR-CON [Concomitant]
  18. LIDOCAINE-PRILOCAINE LONG-ACTING [Concomitant]
  19. LORAZEPAM MIRALAX [Concomitant]
  20. MONTELUKAST [Concomitant]
  21. NYQUIL SEVERE COLD/FLU [Concomitant]
  22. ONDANSETRON [Concomitant]
     Active Substance: ONDANSETRON
  23. OXYCODONE [Concomitant]
  24. PREDNISONE [Concomitant]
  25. PROTONIX [Concomitant]
  26. SENNACON [Concomitant]
  27. MAGNESIUM ME;ATPMOM [Concomitant]
  28. TEARS NATURATE [Concomitant]
  29. VALACYCLOVIR HCL [Concomitant]
  30. VELCADE [Concomitant]
     Active Substance: BORTEZOMIB
  31. XARELTO [Concomitant]
  32. ZOLEDRONIC ACID [Concomitant]

REACTIONS (1)
  - Hospice care [None]
